FAERS Safety Report 12386391 (Version 1)
Quarter: 2016Q2

REPORT INFORMATION
  Report Type: Spontaneous
  Country: US (occurrence: US)
  Receive Date: 20160519
  Receipt Date: 20160519
  Transmission Date: 20160815
  Serious: No
  Sender: FDA-Public Use
  Company Number: US-GLAXOSMITHKLINE-US2016070842

PATIENT
  Sex: Male

DRUGS (1)
  1. FLONASE [Suspect]
     Active Substance: FLUTICASONE PROPIONATE
     Indication: PRODUCT USED FOR UNKNOWN INDICATION
     Dosage: UNK, MORE THAN TWO SPRAY IN EACH NOSE/DAY

REACTIONS (4)
  - Nausea [Unknown]
  - Accidental overdose [Unknown]
  - Dysgeusia [Unknown]
  - Headache [Unknown]
